FAERS Safety Report 10475296 (Version 1)
Quarter: 2014Q3

REPORT INFORMATION
  Report Type: Spontaneous
  Country: US (occurrence: None)
  Receive Date: 20140924
  Receipt Date: 20140924
  Transmission Date: 20150326
  Serious: No
  Sender: FDA-Public Use
  Company Number: None

PATIENT
  Age: 41 Year
  Sex: Female
  Weight: 83.92 kg

DRUGS (7)
  1. AMPYRA [Suspect]
     Active Substance: DALFAMPRIDINE
     Indication: MULTIPLE SCLEROSIS
     Route: 048
     Dates: start: 20130610
  2. BACLOFEN. [Concomitant]
     Active Substance: BACLOFEN
  3. MODAFINIL. [Concomitant]
     Active Substance: MODAFINIL
  4. GLATIRAMER [Concomitant]
     Active Substance: GLATIRAMER
  5. AMANTADINE [Concomitant]
     Active Substance: AMANTADINE
  6. NITROFURANTOIN. [Concomitant]
     Active Substance: NITROFURANTOIN
  7. FUROSEMIDE. [Concomitant]
     Active Substance: FUROSEMIDE

REACTIONS (1)
  - Urinary tract infection [None]

NARRATIVE: CASE EVENT DATE: 20140916
